FAERS Safety Report 5741950-3 (Version None)
Quarter: 2008Q2

REPORT INFORMATION
  Report Type: 
  Country: None (occurrence: None)
  Receive Date: 20080519
  Receipt Date: 20080514
  Transmission Date: 20081010
  Serious: Yes (Hospitalization, Other)
  Sender: FDA-Public Use
  Company Number: PHBS2007BR12014

PATIENT
  Sex: Female

DRUGS (2)
  1. METHERGINE [Suspect]
     Indication: VAGINAL HAEMORRHAGE
     Dosage: 1 DF, TID
  2. RIVOTRIL [Suspect]
     Dosage: UNK, ONCE/SINGLE

REACTIONS (7)
  - ABNORMAL BEHAVIOUR [None]
  - DEPRESSION [None]
  - DRUG INEFFECTIVE [None]
  - INTENTIONAL OVERDOSE [None]
  - MENSTRUAL DISORDER [None]
  - MOOD ALTERED [None]
  - NERVOUSNESS [None]
